FAERS Safety Report 5922694-1 (Version None)
Quarter: 2008Q4

REPORT INFORMATION
  Report Type: 
  Country: None (occurrence: None)
  Receive Date: 20081017
  Receipt Date: 20081008
  Transmission Date: 20090506
  Serious: Yes (Congenital Anomaly)
  Sender: FDA-Public Use
  Company Number: FR-ELI_LILLY_AND_COMPANY-FR200810001817

PATIENT

DRUGS (9)
  1. ZYPREXA [Suspect]
     Indication: BIPOLAR DISORDER
     Dosage: 15 MG, DAILY (1/D)
     Route: 064
  2. DEPAKOTE [Concomitant]
     Dosage: UNK, UNK
     Route: 064
     Dates: end: 20070901
  3. HEPT-A-MYL [Concomitant]
     Dosage: UNK, UNK
     Route: 064
     Dates: end: 20070901
  4. LARGACTIL [Concomitant]
     Dosage: UNK, UNK
     Route: 064
     Dates: start: 20070901, end: 20080101
  5. LARGACTIL [Concomitant]
     Dosage: 25 MG, 5/D
     Route: 064
     Dates: start: 20080101
  6. SERESTA [Concomitant]
     Route: 064
     Dates: start: 20070901, end: 20080101
  7. SERESTA [Concomitant]
     Dosage: 45 MG, DAILY (1/D)
     Dates: start: 20080101
  8. ZOLPIDEM [Concomitant]
     Route: 064
     Dates: start: 20070901, end: 20080101
  9. ZOLPIDEM [Concomitant]
     Dosage: UNK, OCCASIONAL
     Route: 064
     Dates: start: 20080101

REACTIONS (12)
  - CLEFT PALATE [None]
  - DEPRESSED LEVEL OF CONSCIOUSNESS [None]
  - DYSMORPHISM [None]
  - EAR MALFORMATION [None]
  - FOETAL HEART RATE ABNORMAL [None]
  - FOETAL MACROSOMIA [None]
  - HYPOTONIA [None]
  - MOVEMENT DISORDER [None]
  - PILONIDAL CYST CONGENITAL [None]
  - PLAGIOCEPHALY [None]
  - POLYDACTYLY [None]
  - RETROGNATHIA [None]
